FAERS Safety Report 7993496-X (Version None)
Quarter: 2011Q4

REPORT INFORMATION
  Report Type: 
  Country: None (occurrence: None)
  Receive Date: 20111219
  Receipt Date: 20111208
  Transmission Date: 20120403
  Serious: Yes (Hospitalization)
  Sender: FDA-Public Use
  Company Number: CH-ASTRAZENECA-2011SE74601

PATIENT
  Age: 75 Year
  Sex: Male

DRUGS (6)
  1. DIOVAN [Concomitant]
     Route: 048
     Dates: end: 20111101
  2. SINTROM [Suspect]
     Route: 048
     Dates: start: 20080101, end: 20111119
  3. DILZEM [Concomitant]
     Dates: start: 20111101
  4. TAXOTERE [Concomitant]
     Dates: start: 20110912, end: 20111010
  5. PANTOPRAZOLE SODIUM [Concomitant]
     Dates: end: 20111101
  6. NEXIUM [Suspect]
     Route: 048
     Dates: start: 20111101, end: 20111120

REACTIONS (3)
  - INTERNATIONAL NORMALISED RATIO INCREASED [None]
  - EPISTAXIS [None]
  - MELAENA [None]
